FAERS Safety Report 8601019-7 (Version None)
Quarter: 2012Q3

REPORT INFORMATION
  Report Type: 
  Country: None (occurrence: None)
  Receive Date: 20120817
  Receipt Date: 20120809
  Transmission Date: 20120928
  Serious: Yes (Hospitalization, Other)
  Sender: FDA-Public Use
  Company Number: US-ASTELLAS-2012US006435

PATIENT
  Age: 71 Year
  Sex: Female
  Weight: 56 kg

DRUGS (2)
  1. ERLOTINIB HYDROCHLORIDE [Suspect]
     Indication: PANCREATIC CARCINOMA
     Dosage: 100 MG, UID/QD
     Route: 048
     Dates: start: 20120330, end: 20120712
  2. GEMCITABINE HYDROCHLORIDE [Suspect]
     Indication: PANCREATIC CARCINOMA
     Dosage: 1000 MG/M2, OVER 30 MIN WEEKLY FOR WEEKS 1-3
     Route: 042
     Dates: start: 20120330, end: 20120706

REACTIONS (14)
  - GASTRITIS [None]
  - ABDOMINAL PAIN UPPER [None]
  - GASTRIC ULCER [None]
  - PERFORMANCE STATUS DECREASED [None]
  - HAEMATEMESIS [None]
  - WEIGHT DECREASED [None]
  - EPISTAXIS [None]
  - DUODENAL ULCER [None]
  - DECREASED APPETITE [None]
  - DEHYDRATION [None]
  - HEPATIC LESION [None]
  - STAPHYLOCOCCAL INFECTION [None]
  - ANAEMIA [None]
  - MUSCULAR WEAKNESS [None]
